FAERS Safety Report 5430190-3 (Version None)
Quarter: 2007Q3

REPORT INFORMATION
  Report Type: 
  Country: None (occurrence: None)
  Receive Date: 20070731
  Receipt Date: 20070514
  Transmission Date: 20080115
  Serious: No
  Sender: FDA-Public Use
  Company Number: US200705003766

PATIENT
  Age: 48 Year
  Sex: Female
  Weight: 89.8 kg

DRUGS (1)
  1. BYETTA [Suspect]
     Indication: WEIGHT DECREASED
     Dosage: 5 UG, 2/D, SUBCUTANEOUS
     Route: 058
     Dates: start: 20070426

REACTIONS (5)
  - DECREASED APPETITE [None]
  - FEELING ABNORMAL [None]
  - LIMB INJURY [None]
  - PAIN IN EXTREMITY [None]
  - WEIGHT DECREASED [None]
